FAERS Safety Report 5383812-X (Version None)
Quarter: 2007Q3

REPORT INFORMATION
  Report Type: 
  Country: None (occurrence: None)
  Receive Date: 20070706
  Receipt Date: 20070626
  Transmission Date: 20080115
  Serious: Yes (Other)
  Sender: FDA-Public Use
  Company Number: CHPA2007US07235

PATIENT
  Age: 65 Year
  Sex: Male

DRUGS (15)
  1. NICOTINE [Suspect]
     Indication: SMOKING CESSATION THERAPY
     Dosage: 21 MG, QD, TRANSDERMAL
     Route: 062
     Dates: start: 20070615
  2. BURPOPION                    (BUPROPION) [Suspect]
     Dosage: SEE IMAGE
  3. ASPIRIN [Suspect]
     Dosage: SEE IMAGE
  4. OMEPRAZOLE [Concomitant]
  5. ISOSORBIDE MONONITRATE [Concomitant]
  6. LISINOPRIL [Concomitant]
  7. METOPROLOL TARTRATE [Concomitant]
  8. PLAVIX [Concomitant]
  9. FUROSEMIDE [Concomitant]
  10. POTASSIUM     (POTASSIUM) [Concomitant]
  11. GABAPENTIN [Concomitant]
  12. TERAZOSIN HCL [Concomitant]
  13. VYTORIN [Concomitant]
  14. ACETAMINOPHEN W/ CODEINE [Concomitant]
  15. ETODOLAC [Concomitant]

REACTIONS (9)
  - ABNORMAL DREAMS [None]
  - BALANCE DISORDER [None]
  - DIZZINESS [None]
  - DRY MOUTH [None]
  - FALL [None]
  - MOOD SWINGS [None]
  - MUSCLE TIGHTNESS [None]
  - PARAESTHESIA ORAL [None]
  - TREATMENT NONCOMPLIANCE [None]
